FAERS Safety Report 5357366-8 (Version None)
Quarter: 2007Q2

REPORT INFORMATION
  Report Type: 
  Country: None (occurrence: None)
  Receive Date: 20070614
  Receipt Date: 20070611
  Transmission Date: 20071010
  Serious: Yes (Hospitalization)
  Sender: FDA-Public Use
  Company Number: B0473423A

PATIENT
  Age: 60 Year
  Sex: Male
  Weight: 55 kg

DRUGS (4)
  1. PAXIL [Suspect]
     Indication: SOCIAL PHOBIA
     Route: 048
     Dates: start: 20070129
  2. ALMARL [Suspect]
     Indication: ESSENTIAL TREMOR
     Dosage: 5MG PER DAY
     Route: 048
     Dates: start: 20051101
  3. LEXOTAN [Suspect]
     Indication: DEPRESSION
     Dosage: 5MG THREE TIMES PER DAY
     Route: 048
     Dates: start: 20050606
  4. FLUVOXAMINE MALEATE [Concomitant]
     Indication: SOCIAL PHOBIA

REACTIONS (5)
  - CONTUSION [None]
  - FOOT FRACTURE [None]
  - RIB FRACTURE [None]
  - ROAD TRAFFIC ACCIDENT [None]
  - SOMNOLENCE [None]
